FAERS Safety Report 8924000 (Version 1)
Quarter: 2012Q4

REPORT INFORMATION
  Report Type: Spontaneous
  Country: US (occurrence: None)
  Receive Date: 20121121
  Receipt Date: 20121121
  Transmission Date: 20130627
  Serious: No
  Sender: FDA-Public Use
  Company Number: None

PATIENT
  Sex: Female

DRUGS (1)
  1. AUGMENTIN [Suspect]
     Indication: RESPIRATORY TRACT INFECTION
     Dates: start: 20110311, end: 20110314

REACTIONS (6)
  - Drug-induced liver injury [None]
  - Cholestasis [None]
  - Fatigue [None]
  - Abdominal pain [None]
  - Nausea [None]
  - Vomiting [None]
